FAERS Safety Report 6419735-4 (Version None)
Quarter: 2009Q4

REPORT INFORMATION
  Report Type: 
  Country: None (occurrence: None)
  Receive Date: 20091029
  Receipt Date: 20091026
  Transmission Date: 20100525
  Serious: Yes (Hospitalization, Disabling)
  Sender: FDA-Public Use
  Company Number: DE-AVENTIS-200911684DE

PATIENT
  Sex: Male

DRUGS (5)
  1. LANTUS [Suspect]
     Indication: INSULIN-REQUIRING TYPE 2 DIABETES MELLITUS
     Route: 058
     Dates: start: 20000101
  2. DELIX                              /00885601/ [Concomitant]
     Dosage: DOSE: 1 TABLET IN THE MORNING
     Route: 048
  3. NEXIUM [Concomitant]
     Indication: DRUG USE FOR UNKNOWN INDICATION
     Dosage: DOSE: 1 TABLET IN THE MORNING
     Route: 048
  4. PK-MERZ                            /00055903/ [Concomitant]
     Indication: DRUG USE FOR UNKNOWN INDICATION
     Dosage: DOSE: 1 TABLET IN THE MORNING, 1 TABLET AT AFTERNOON
     Route: 048
  5. NACOM [Concomitant]
     Dosage: DOSE: 1 TABLET IN THE MORNING, 1 TABLET AT AFTERNOON
     Route: 048

REACTIONS (1)
  - COLORECTAL CANCER [None]
